FAERS Safety Report 4930716-X (Version None)
Quarter: 2006Q1

REPORT INFORMATION
  Report Type: 
  Country: None (occurrence: None)
  Receive Date: 20060227
  Receipt Date: 20060213
  Transmission Date: 20060701
  Serious: Yes (Other)
  Sender: FDA-Public Use
  Company Number: 2006023733

PATIENT
  Sex: Male

DRUGS (8)
  1. VIAGRA [Suspect]
     Indication: ILL-DEFINED DISORDER
     Dosage: (25 MG)
  2. PLENDIL [Suspect]
     Indication: HYPERTENSION
     Dosage: (10 MG)
  3. SYNTHROID [Concomitant]
  4. RANITIDINE (RANTIDINE) [Concomitant]
  5. SALSALATE (SALSALATE) [Concomitant]
  6. ALL OTHER THERAPEUTIC PRODUCTS (ALL OTHER THERAPEUTIC PRODUCTS) [Concomitant]
  7. AREDIA [Concomitant]
  8. VITAMINS (VITAMINS) [Concomitant]

REACTIONS (3)
  - DRUG INEFFECTIVE [None]
  - MULTIPLE ALLERGIES [None]
  - RECURRENT CANCER [None]
